FAERS Safety Report 8496794-9 (Version None)
Quarter: 2012Q3

REPORT INFORMATION
  Report Type: 
  Country: None (occurrence: None)
  Receive Date: 20120709
  Receipt Date: 20120703
  Transmission Date: 20120928
  Serious: Yes (Hospitalization)
  Sender: FDA-Public Use
  Company Number: PHHY2012FR041780

PATIENT
  Sex: Male
  Weight: 70 kg

DRUGS (3)
  1. IMATINIB MESYLATE [Suspect]
     Indication: CHRONIC MYELOID LEUKAEMIA
     Dosage: UNK UKN, UNK
  2. ALLOPURINOL [Concomitant]
     Indication: HYPERURICAEMIA
     Dosage: 200 MG, DAILY
  3. FENOFIBRATE [Concomitant]
     Indication: DYSLIPIDAEMIA
     Dosage: 200 MG, UNK

REACTIONS (3)
  - INTERVERTEBRAL DISC PROTRUSION [None]
  - BACK PAIN [None]
  - SCIATIC NERVE PALSY [None]
